FAERS Safety Report 24526689 (Version 1)
Quarter: 2024Q4

REPORT INFORMATION
  Report Type: Report from Study
  Country: US (occurrence: US)
  Receive Date: 20241021
  Receipt Date: 20241021
  Transmission Date: 20250114
  Serious: No
  Sender: ROCHE
  Company Number: US-ROCHE-2572521

PATIENT
  Age: 61 Year
  Sex: Male

DRUGS (18)
  1. ZELBORAF [Suspect]
     Active Substance: VEMURAFENIB
     Indication: Metastasis
     Dosage: TAKE 4 TABLET(S) BY MOUTH TWICE A DAY
     Route: 048
  2. ZELBORAF [Suspect]
     Active Substance: VEMURAFENIB
     Indication: Pulmonary mass
     Dosage: TAKE 4 TABLET(S) BY MOUTH TWICE A DAY
     Route: 048
  3. ZELBORAF [Suspect]
     Active Substance: VEMURAFENIB
     Indication: Lung infiltration
     Route: 048
  4. ZELBORAF [Suspect]
     Active Substance: VEMURAFENIB
     Indication: Neoplasm malignant
     Route: 048
  5. ZELBORAF [Suspect]
     Active Substance: VEMURAFENIB
     Indication: Basal cell carcinoma
     Route: 048
  6. COTELLIC [Suspect]
     Active Substance: COBIMETINIB
     Indication: Metastasis
     Dosage: TAKE 3 TABLET(S) BY MOUTH EVERY DAY ON DAYS 1-21 EVERY 28 DAY(S) (3 WEEKS ON, 1 WEEK OFF)
     Route: 048
     Dates: start: 20240219
  7. COTELLIC [Suspect]
     Active Substance: COBIMETINIB
     Indication: Pulmonary mass
     Route: 048
  8. COTELLIC [Suspect]
     Active Substance: COBIMETINIB
     Indication: Neoplasm malignant
     Route: 048
  9. COTELLIC [Suspect]
     Active Substance: COBIMETINIB
     Indication: Lung infiltration
     Route: 048
  10. COTELLIC [Suspect]
     Active Substance: COBIMETINIB
     Indication: Basal cell carcinoma
     Route: 048
  11. PRINIVIL [Concomitant]
     Active Substance: LISINOPRIL
     Dosage: TAKE ONE TABLET BY MOUTH DAILY
  12. MEDROL [Concomitant]
     Active Substance: METHYLPREDNISOLONE
     Dosage: TAKE BY MOUTH
  13. PEPCID [Concomitant]
     Active Substance: FAMOTIDINE
  14. APRESOLINE HYDROCHLORIDE [Concomitant]
     Active Substance: HYDRALAZINE HYDROCHLORIDE
  15. ALDACTONE [Concomitant]
     Active Substance: SPIRONOLACTONE
  16. COREG [Concomitant]
     Active Substance: CARVEDILOL
  17. COREG [Concomitant]
     Active Substance: CARVEDILOL
     Dosage: TAKE 6.25 MG BY MOUTH 2 TIMES DAILY (WITH MEALS).
  18. NORVASC [Concomitant]
     Active Substance: AMLODIPINE BESYLATE
     Dosage: TAKE 2 TABLETS BY MOUTH DAILY

REACTIONS (1)
  - Memory impairment [Unknown]
